FAERS Safety Report 7501615-4 (Version None)
Quarter: 2011Q2

REPORT INFORMATION
  Report Type: 
  Country: None (occurrence: None)
  Receive Date: 20110524
  Receipt Date: 20110516
  Transmission Date: 20111010
  Serious: Yes (Other)
  Sender: FDA-Public Use
  Company Number: US-RB-021348-11

PATIENT
  Age: 25 Year
  Sex: Female

DRUGS (2)
  1. SUBOXONE [Suspect]
     Indication: PRODUCT USED FOR UNKNOWN INDICATION
     Dosage: DOSING INFORMATION UNKNOWN
     Route: 065
  2. SUBOXONE [Suspect]
     Indication: PRODUCT USED FOR UNKNOWN INDICATION
     Dosage: SUBLINGUAL FILM- DOSING INFORMATION UNKNOWN
     Route: 065

REACTIONS (17)
  - APATHY [None]
  - YAWNING [None]
  - CONVULSION [None]
  - SUBSTANCE ABUSE [None]
  - DRUG WITHDRAWAL SYNDROME [None]
  - INFLUENZA [None]
  - SOMNOLENCE [None]
  - NASOPHARYNGITIS [None]
  - THROAT IRRITATION [None]
  - NAUSEA [None]
  - DIZZINESS [None]
  - AGITATION [None]
  - MUSCLE TWITCHING [None]
  - MALAISE [None]
  - INTENTIONAL OVERDOSE [None]
  - PANIC ATTACK [None]
  - INCREASED UPPER AIRWAY SECRETION [None]
